FAERS Safety Report 10479493 (Version 1)
Quarter: 2014Q3

REPORT INFORMATION
  Report Type: Report from Study
  Country: US (occurrence: US)
  Receive Date: 20140926
  Receipt Date: 20140926
  Transmission Date: 20150326
  Serious: Yes (Other)
  Sender: FDA-Public Use
  Company Number: US-ALEXION PHARMACEUTICALS INC-A201102476

PATIENT
  Age: 58 Year
  Sex: Female
  Weight: 72.5 kg

DRUGS (2)
  1. SOLIRIS [Suspect]
     Active Substance: ECULIZUMAB
     Indication: PAROXYSMAL NOCTURNAL HAEMOGLOBINURIA
     Dosage: UNK
     Route: 042
  2. SOLIRIS [Suspect]
     Active Substance: ECULIZUMAB
     Dosage: UNK
     Route: 042
     Dates: start: 20110708

REACTIONS (19)
  - White blood cell count decreased [Unknown]
  - Packed red blood cell transfusion [Unknown]
  - Blood pressure increased [Unknown]
  - Sluggishness [Unknown]
  - Diarrhoea [Recovered/Resolved]
  - Decreased appetite [Recovered/Resolved]
  - Vomiting [Recovered/Resolved]
  - Contusion [Unknown]
  - Asthenia [Unknown]
  - Nausea [Recovered/Resolved]
  - Palpitations [Unknown]
  - Platelet count decreased [Unknown]
  - Gastroenteritis viral [Recovered/Resolved]
  - Fatigue [Unknown]
  - Weight decreased [Recovered/Resolved]
  - Haemoglobin decreased [Unknown]
  - Stress [Unknown]
  - Feeling abnormal [Unknown]
  - Blood iron increased [Unknown]

NARRATIVE: CASE EVENT DATE: 20110703
